FAERS Safety Report 15079959 (Version 1)
Quarter: 2018Q2

REPORT INFORMATION
  Report Type: Spontaneous
  Country: US (occurrence: US)
  Receive Date: 20180627
  Receipt Date: 20180627
  Transmission Date: 20180711
  Serious: No
  Sender: FDA-Public Use
  Company Number: US-009507513-1806USA011135

PATIENT
  Sex: Female

DRUGS (1)
  1. BELSOMRA [Suspect]
     Active Substance: SUVOREXANT
     Indication: INSOMNIA
     Dosage: 20 MG,  TABLET DAILY
     Route: 048
     Dates: start: 2018

REACTIONS (3)
  - Poor quality sleep [Unknown]
  - Drug dose omission [Unknown]
  - Insomnia [Unknown]
